FAERS Safety Report 11060115 (Version 2)
Quarter: 2015Q2

REPORT INFORMATION
  Report Type: Spontaneous
  Country: CH (occurrence: CH)
  Receive Date: 20150423
  Receipt Date: 20150424
  Transmission Date: 20150821
  Serious: Yes (Hospitalization)
  Sender: FDA-Public Use
  Company Number: CH-PFIZER INC-2015132310

PATIENT
  Age: 45 Year
  Sex: Female

DRUGS (7)
  1. TRESIBA [Suspect]
     Active Substance: INSULIN DEGLUDEC
     Dosage: 20 IU/ML 1X/DAY
     Route: 059
     Dates: start: 20140826, end: 20141122
  2. SIRDALUD [Suspect]
     Active Substance: TIZANIDINE
     Dosage: 2 MG, 4X/DAY
     Dates: start: 20140822, end: 20141107
  3. CLEXANE [Suspect]
     Active Substance: ENOXAPARIN SODIUM
     Indication: THROMBOSIS PROPHYLAXIS
     Dosage: UNK
     Dates: end: 20141117
  4. LYRICA [Suspect]
     Active Substance: PREGABALIN
     Dosage: 75 MG, 1X/DAY
     Dates: start: 20140825, end: 20141110
  5. LYRICA [Suspect]
     Active Substance: PREGABALIN
     Dosage: 50 MG, 1X/DAY
     Dates: start: 20140825, end: 20141110
  6. MAGNESIOCARD [Concomitant]
     Active Substance: MAGNESIUM ASPARTATE HYDROCHLORIDE
     Dosage: 1 DF (10 GRAN) , 1X/DAY
  7. APIDRA [Concomitant]
     Active Substance: INSULIN GLULISINE
     Dosage: 100 IU/ML, ACCORDING TO SCHEDULE

REACTIONS (11)
  - Rash maculo-papular [Recovered/Resolved]
  - Hyponatraemia [Recovering/Resolving]
  - Drug-induced liver injury [Unknown]
  - Jaundice [Recovering/Resolving]
  - Hepatitis acute [Unknown]
  - Liver function test abnormal [Recovering/Resolving]
  - Cholestasis [Unknown]
  - Liver disorder [Recovering/Resolving]
  - Prothrombin time prolonged [Recovering/Resolving]
  - Cholecystitis acute [Unknown]
  - Thrombocytopenia [Recovering/Resolving]

NARRATIVE: CASE EVENT DATE: 20141107
